FAERS Safety Report 15057284 (Version 1)
Quarter: 2018Q2

REPORT INFORMATION
  Report Type: Spontaneous
  Country: US (occurrence: US)
  Receive Date: 20180604
  Receipt Date: 20180604
  Transmission Date: 20180711
  Serious: Yes (Other)
  Sender: FDA-Public Use
  Company Number: None

PATIENT
  Age: 19 Year
  Sex: Female
  Weight: 62.1 kg

DRUGS (1)
  1. MIDAZOLAM [Suspect]
     Active Substance: MIDAZOLAM HYDROCHLORIDE
     Indication: PREOPERATIVE CARE
     Dosage: ?          QUANTITY:1 INJECTION(S);OTHER FREQUENCY:PRE SURGERY;?
     Route: 042
     Dates: start: 20170907, end: 20170907

REACTIONS (11)
  - Eye disorder [None]
  - Vomiting [None]
  - Constipation [None]
  - Nausea [None]
  - Recalled product [None]
  - Pain [None]
  - Product label issue [None]
  - Somnolence [None]
  - Feeling abnormal [None]
  - Headache [None]
  - Dizziness [None]

NARRATIVE: CASE EVENT DATE: 20170907
